FAERS Safety Report 20536139 (Version 10)
Quarter: 2024Q2

REPORT INFORMATION
  Report Type: Spontaneous
  Country: US (occurrence: US)
  Receive Date: 20220302
  Receipt Date: 20240626
  Transmission Date: 20240716
  Serious: Yes (Hospitalization, Disabling, Other)
  Sender: FDA-Public Use
  Company Number: US-ORGANON-O2202USA002344

PATIENT
  Sex: Female
  Weight: 114.74 kg

DRUGS (9)
  1. SINGULAIR [Suspect]
     Active Substance: MONTELUKAST SODIUM
     Indication: Asthma
     Dosage: UNK
     Route: 048
     Dates: start: 1998, end: 2003
  2. ALBUTEROL SULFATE [Concomitant]
     Active Substance: ALBUTEROL SULFATE
     Indication: Wheezing
     Dosage: 108 (90 BASE MCG/ACT INHALATION AER SOL), 2 PUFFS EVERY 4 HOURS AS NEEDED
  3. ALBUTEROL SULFATE [Concomitant]
     Active Substance: ALBUTEROL SULFATE
     Indication: Dyspnoea
  4. BIOTIN [Concomitant]
     Active Substance: BIOTIN
     Dosage: UNK
     Route: 048
  5. VITAMIN B12 [Concomitant]
     Active Substance: CYANOCOBALAMIN
     Dosage: 1 DOSAGE FORM, QD (30 TABS)
     Route: 048
  6. FERROUS SULFATE [Concomitant]
     Active Substance: FERROUS SULFATE
     Dosage: 1 DOSAGE FORM, QD (30 TABS)
     Route: 048
  7. SYNTHROID [Concomitant]
     Active Substance: LEVOTHYROXINE SODIUM
     Dosage: 1 DOSAGE FORM, QD (BEFORE BREAKFAST, 30 TABS, 5 REFILL)
     Route: 048
  8. MAGNESIUM [Concomitant]
     Active Substance: MAGNESIUM
     Dosage: UNK
     Route: 048
  9. VITAMINS [Concomitant]
     Active Substance: VITAMINS
     Dosage: UNK
     Route: 048

REACTIONS (63)
  - Bipolar disorder [Unknown]
  - Neuropsychological symptoms [Not Recovered/Not Resolved]
  - Intentional self-injury [Not Recovered/Not Resolved]
  - Anxiety [Not Recovered/Not Resolved]
  - Suicidal ideation [Not Recovered/Not Resolved]
  - Depression [Not Recovered/Not Resolved]
  - Suicide attempt [Unknown]
  - Intentional self-injury [Unknown]
  - Mental disorder [Not Recovered/Not Resolved]
  - Asthma [Not Recovered/Not Resolved]
  - Obesity [Not Recovered/Not Resolved]
  - Gastric perforation [Unknown]
  - Metabolic surgery [Not Recovered/Not Resolved]
  - Gastric bypass [Unknown]
  - Hypothyroidism [Not Recovered/Not Resolved]
  - Non-alcoholic steatohepatitis [Not Recovered/Not Resolved]
  - Cholecystectomy [Recovered/Resolved]
  - Intestinal perforation [Not Recovered/Not Resolved]
  - Polycystic ovarian syndrome [Unknown]
  - Borderline personality disorder [Not Recovered/Not Resolved]
  - Haemorrhagic ovarian cyst [Unknown]
  - Bipolar I disorder [Unknown]
  - Abdominal operation [Unknown]
  - Incision site abscess [Unknown]
  - Obstructive sleep apnoea syndrome [Not Recovered/Not Resolved]
  - Polycystic ovaries [Not Recovered/Not Resolved]
  - Malabsorption [Not Recovered/Not Resolved]
  - Corrective lens user [Not Recovered/Not Resolved]
  - Dermatitis [Not Recovered/Not Resolved]
  - Eczema [Not Recovered/Not Resolved]
  - Post inflammatory pigmentation change [Not Recovered/Not Resolved]
  - Migraine with aura [Not Recovered/Not Resolved]
  - Wound dehiscence [Not Recovered/Not Resolved]
  - Malnutrition [Not Recovered/Not Resolved]
  - Abdominal hernia [Not Recovered/Not Resolved]
  - Carpal tunnel syndrome [Not Recovered/Not Resolved]
  - Incisional hernia [Not Recovered/Not Resolved]
  - Wound infection [Not Recovered/Not Resolved]
  - Procedural pain [Not Recovered/Not Resolved]
  - Post procedural complication [Unknown]
  - Abdominal pain [Not Recovered/Not Resolved]
  - Pelvic pain [Unknown]
  - Heavy menstrual bleeding [Unknown]
  - Dysmenorrhoea [Unknown]
  - Dyspareunia [Unknown]
  - Depression [Unknown]
  - Gastric bypass [Unknown]
  - Psychotic behaviour [Unknown]
  - Cholelithiasis [Unknown]
  - Internal hernia [Unknown]
  - Migraine [Unknown]
  - Adjustment disorder [Unknown]
  - Oesophageal anastomosis [Unknown]
  - Endocrine disorder [Unknown]
  - Wound secretion [Unknown]
  - Muscular weakness [Unknown]
  - Back pain [Unknown]
  - Neck pain [Unknown]
  - Posture abnormal [Unknown]
  - Fibromyalgia [Unknown]
  - Hypermobility syndrome [Unknown]
  - Arthritis [Unknown]
  - Malabsorption [Unknown]

NARRATIVE: CASE EVENT DATE: 19980101
